FAERS Safety Report 9096499 (Version 1)
Quarter: 2013Q1

REPORT INFORMATION
  Report Type: Spontaneous
  Country: SE (occurrence: None)
  Receive Date: 20130124
  Receipt Date: 20130124
  Transmission Date: 20140127
  Serious: Yes (Other)
  Sender: FDA-Public Use
  Company Number: SE-SEPTODONT-201300931

PATIENT
  Age: 61 Year
  Sex: Male

DRUGS (1)
  1. SEPTANEST (ARTICAINE HCL 4% AND EPINEPHRINE) [Suspect]
     Indication: LOCAL ANAESTHESIA
     Route: 004
     Dates: start: 20110628

REACTIONS (5)
  - Ageusia [None]
  - Dysarthria [None]
  - Injection site paraesthesia [None]
  - Paraesthesia oral [None]
  - Paraesthesia oral [None]
